FAERS Safety Report 8924717 (Version 3)
Quarter: 2013Q3

REPORT INFORMATION
  Report Type: Spontaneous
  Country: US (occurrence: US)
  Receive Date: 20121126
  Receipt Date: 20130821
  Transmission Date: 20140515
  Serious: No
  Sender: FDA-Public Use
  Company Number: US-PFIZER INC-2012293281

PATIENT
  Age: 82 Year
  Sex: Male
  Weight: 77.1 kg

DRUGS (5)
  1. ADVIL [Suspect]
     Indication: MUSCLE SPASMS
     Dosage: ONE TO TWO TABLETS OF 200MG AS NEEDED
     Route: 048
  2. ADVIL [Suspect]
     Indication: HEADACHE
     Dosage: 300 MG (2 TABLETS OF 150 MG TOGETHER), THREE TIMES A WEEK
     Route: 048
  3. VIAGRA [Suspect]
     Indication: ERECTILE DYSFUNCTION
     Dosage: 20 MG, AS NEEDED
     Route: 048
  4. VIAGRA [Suspect]
     Dosage: 50 MG, AS NEEDED
     Route: 048
     Dates: start: 201307
  5. VIAGRA [Suspect]
     Dosage: 100 MG (2 TABLETS OF 50 MG TOGETHER), UNK
     Route: 048

REACTIONS (5)
  - Poor quality drug administered [Unknown]
  - Therapeutic response unexpected [Unknown]
  - Product physical issue [Unknown]
  - Drug ineffective [Unknown]
  - Intentional drug misuse [Unknown]
